FAERS Safety Report 17112122 (Version 1)
Quarter: 2019Q4

REPORT INFORMATION
  Report Type: Spontaneous
  Country: CA (occurrence: CA)
  Receive Date: 20191204
  Receipt Date: 20191204
  Transmission Date: 20200122
  Serious: Yes (Hospitalization, Other)
  Sender: FDA-Public Use
  Company Number: CA-SAMSUNG BIOEPIS-SB-2019-35369

PATIENT
  Sex: Female

DRUGS (2)
  1. RENFLEXIS [Suspect]
     Active Substance: INFLIXIMAB-ABDA
     Indication: CROHN^S DISEASE
     Dosage: UNKNOWN
     Route: 065
     Dates: start: 20190912
  2. COLESTIPOL [Concomitant]
     Active Substance: COLESTIPOL
     Indication: PRODUCT USED FOR UNKNOWN INDICATION
     Dosage: UNKNOWN
     Route: 065

REACTIONS (19)
  - Chest discomfort [Recovered/Resolved]
  - Crohn^s disease [Not Recovered/Not Resolved]
  - Product substitution issue [Unknown]
  - Bedridden [Unknown]
  - Asthenia [Unknown]
  - Discomfort [Unknown]
  - Anxiety [Unknown]
  - Palpitations [Recovered/Resolved]
  - Hypertension [Unknown]
  - Malaise [Unknown]
  - Headache [Recovering/Resolving]
  - Vocal cord paralysis [Unknown]
  - Infusion site reaction [Unknown]
  - Facial pain [Unknown]
  - Dyspnoea [Recovered/Resolved]
  - Chest pain [Recovered/Resolved]
  - Pulmonary embolism [Unknown]
  - Dizziness [Unknown]
  - Influenza like illness [Unknown]
